FAERS Safety Report 10056890 (Version 6)
Quarter: 2014Q3

REPORT INFORMATION
  Report Type: Spontaneous
  Country: US (occurrence: US)
  Receive Date: 20140403
  Receipt Date: 20140822
  Transmission Date: 20150326
  Serious: Yes (Death, Hospitalization, Other)
  Sender: FDA-Public Use
  Company Number: US-009507513-1404USA001538

PATIENT
  Sex: Male
  Weight: 89.8 kg

DRUGS (4)
  1. JANUVIA [Suspect]
     Active Substance: SITAGLIPTIN PHOSPHATE
     Indication: TYPE 2 DIABETES MELLITUS
     Dosage: 100 MG,QD
     Route: 048
     Dates: start: 20070328
  2. JANUVIA [Suspect]
     Active Substance: SITAGLIPTIN PHOSPHATE
     Dosage: 100 MG, UNK
     Route: 048
     Dates: start: 20120409
  3. JANUMET [Suspect]
     Active Substance: METFORMIN HYDROCHLORIDE\SITAGLIPTIN PHOSPHATE
     Indication: TYPE 2 DIABETES MELLITUS
     Dosage: 50/500 AND 50/1000 MG, BID
     Route: 048
     Dates: start: 20080229, end: 20120403
  4. JANUVIA [Suspect]
     Active Substance: SITAGLIPTIN PHOSPHATE
     Dosage: 25 MG, UNK
     Route: 048
     Dates: start: 20120918

REACTIONS (55)
  - Mitral valve replacement [Unknown]
  - Myoglobin blood increased [Unknown]
  - Pulmonary hypertension [Unknown]
  - Hypovolaemia [Unknown]
  - Hyperlipidaemia [Unknown]
  - Ileus [Unknown]
  - Pancreatitis [Unknown]
  - Muscle fatigue [Unknown]
  - Pneumonia [Unknown]
  - Arthritis [Unknown]
  - Adenocarcinoma pancreas [Fatal]
  - Bile duct stent insertion [Unknown]
  - Ankle arthroplasty [Unknown]
  - Mitral valve stenosis [Unknown]
  - Pneumonia [Unknown]
  - Pleural calcification [Unknown]
  - Adrenal adenoma [Unknown]
  - Chronic obstructive pulmonary disease [Not Recovered/Not Resolved]
  - Sleep disorder [Unknown]
  - Pseudomonas infection [Unknown]
  - Large intestine polyp [Unknown]
  - Pancreatic steatosis [Unknown]
  - Neoplasm malignant [Unknown]
  - Renal failure acute [Unknown]
  - Cholelithiasis [Unknown]
  - Pleural effusion [Unknown]
  - Haemorrhagic anaemia [Unknown]
  - Metabolic acidosis [Unknown]
  - Blood urine present [Unknown]
  - Headache [Unknown]
  - Pancreatitis [Unknown]
  - Oedema peripheral [Unknown]
  - Anaemia [Not Recovered/Not Resolved]
  - Asthma [Unknown]
  - Cardiac disorder [Unknown]
  - Pancreatitis acute [Unknown]
  - Peptic ulcer [Recovering/Resolving]
  - Gastritis [Recovering/Resolving]
  - Leukocytosis [Unknown]
  - Hypertension [Unknown]
  - Back pain [Unknown]
  - Investigation [Unknown]
  - Atrial fibrillation [Not Recovered/Not Resolved]
  - Anticoagulation drug level below therapeutic [Unknown]
  - Hearing impaired [Unknown]
  - Gastrointestinal disorder [Unknown]
  - Renal failure chronic [Not Recovered/Not Resolved]
  - Renal cyst [Unknown]
  - Spinal osteoarthritis [Unknown]
  - Muscular weakness [Unknown]
  - Cataract operation [Unknown]
  - Ventricular extrasystoles [Unknown]
  - Forearm fracture [Unknown]
  - Gout [Unknown]
  - Blood creatinine increased [Unknown]

NARRATIVE: CASE EVENT DATE: 2007
